FAERS Safety Report 10633097 (Version 1)
Quarter: 2014Q4

REPORT INFORMATION
  Report Type: Spontaneous
  Country: US (occurrence: None)
  Receive Date: 20141204
  Receipt Date: 20141204
  Transmission Date: 20150529
  Serious: Yes (Hospitalization)
  Sender: FDA-Public Use
  Company Number: 2014CT000200

PATIENT
  Age: 68 Year
  Sex: Female
  Weight: 104.33 kg

DRUGS (1)
  1. KORLYM [Suspect]
     Active Substance: MIFEPRISTONE
     Indication: CUSHING^S SYNDROME
     Route: 048
     Dates: start: 20130913

REACTIONS (4)
  - Ligament sprain [None]
  - Fall [None]
  - Blood potassium decreased [None]
  - Urinary tract infection [None]

NARRATIVE: CASE EVENT DATE: 20141115
